FAERS Safety Report 5660982-7 (Version None)
Quarter: 2008Q1

REPORT INFORMATION
  Report Type: 
  Country: None (occurrence: None)
  Receive Date: 20080311
  Receipt Date: 20080228
  Transmission Date: 20080703
  Serious: Yes (Hospitalization)
  Sender: FDA-Public Use
  Company Number: JP-PFIZER INC-2008007092

PATIENT
  Sex: Female
  Weight: 44 kg

DRUGS (9)
  1. AZULFIDINE EN-TABS [Suspect]
     Indication: RHEUMATOID ARTHRITIS
     Dosage: DAILY DOSE:1000MG
     Route: 048
     Dates: start: 20050126, end: 20050130
  2. BLOPRESS [Concomitant]
  3. MUCOSOLVAN [Concomitant]
  4. MUCODYNE [Concomitant]
  5. MARZULENE [Concomitant]
  6. PREDONINE [Concomitant]
  7. VOLTAREN [Concomitant]
  8. GASLON [Concomitant]
  9. HOKUNALIN [Concomitant]

REACTIONS (2)
  - PNEUMONIA [None]
  - RASH [None]
